FAERS Safety Report 10007417 (Version 1)
Quarter: 2014Q1

REPORT INFORMATION
  Report Type: Spontaneous
  Country: IT (occurrence: IT)
  Receive Date: 20140313
  Receipt Date: 20140313
  Transmission Date: 20141002
  Serious: Yes (Hospitalization)
  Sender: FDA-Public Use
  Company Number: IT-GLAXOSMITHKLINE-B0976261A

PATIENT
  Age: 69 Year
  Sex: Male

DRUGS (3)
  1. ALKERAN [Suspect]
     Indication: PLASMA CELL MYELOMA
     Dosage: 2MG UNKNOWN
     Route: 048
     Dates: start: 20131203, end: 20131212
  2. VELCADE [Concomitant]
     Indication: PLASMA CELL MYELOMA
     Route: 058
     Dates: start: 20131202, end: 20131209
  3. DELTACORTENE [Concomitant]
     Indication: PLASMA CELL MYELOMA
     Route: 048

REACTIONS (2)
  - Atrial flutter [Recovered/Resolved]
  - Overdose [Recovered/Resolved]
